FAERS Safety Report 11390664 (Version 1)
Quarter: 2015Q3

REPORT INFORMATION
  Report Type: Spontaneous
  Country: US (occurrence: US)
  Receive Date: 20150818
  Receipt Date: 20150818
  Transmission Date: 20151125
  Serious: No
  Sender: FDA-Public Use
  Company Number: US-ROCHE-1384535

PATIENT
  Sex: Female

DRUGS (6)
  1. PHENERGAN [Concomitant]
     Active Substance: PROMETHAZINE HYDROCHLORIDE
     Dosage: AS REQUIRED.
     Route: 065
  2. PROTONIX (UNITED STATES) [Concomitant]
     Route: 065
  3. PEGASYS [Suspect]
     Active Substance: PEGINTERFERON ALFA-2A
     Indication: CHRONIC HEPATITIS C
     Route: 058
     Dates: start: 20140331
  4. SIMEPREVIR [Suspect]
     Active Substance: SIMEPREVIR
     Indication: CHRONIC HEPATITIS C
     Route: 065
     Dates: start: 20140331
  5. ZOFRAN [Concomitant]
     Active Substance: ONDANSETRON HYDROCHLORIDE
  6. RIBAVIRIN. [Suspect]
     Active Substance: RIBAVIRIN
     Indication: CHRONIC HEPATITIS C
     Dosage: DIVIDED DOSES.
     Route: 048
     Dates: start: 20140331

REACTIONS (6)
  - Arthralgia [Unknown]
  - Myalgia [Unknown]
  - Abdominal tenderness [Unknown]
  - Headache [Unknown]
  - Injection site reaction [Unknown]
  - Pyrexia [Unknown]
